FAERS Safety Report 16417676 (Version 2)
Quarter: 2019Q2

REPORT INFORMATION
  Report Type: Spontaneous
  Country: ZA (occurrence: ZA)
  Receive Date: 20190611
  Receipt Date: 20190624
  Transmission Date: 20190711
  Serious: Yes (Other)
  Sender: FDA-Public Use
  Company Number: ZA-BAYER-2019-085815

PATIENT
  Age: 41 Year
  Sex: Female

DRUGS (1)
  1. STIVARGA [Suspect]
     Active Substance: REGORAFENIB
     Dosage: 160 MG, QD
     Route: 048
     Dates: start: 20190305, end: 20190507

REACTIONS (11)
  - Small intestinal obstruction [None]
  - Intestinal fibrosis [None]
  - Nausea [None]
  - Diarrhoea [None]
  - Radiation injury [None]
  - Weight decreased [None]
  - Decreased appetite [None]
  - Abdominal pain upper [None]
  - Therapy non-responder [None]
  - Ileal stenosis [None]
  - Vomiting [None]

NARRATIVE: CASE EVENT DATE: 2019
